FAERS Safety Report 7293987-3 (Version None)
Quarter: 2011Q1

REPORT INFORMATION
  Report Type: 
  Country: None (occurrence: None)
  Receive Date: 20110215
  Receipt Date: 20110204
  Transmission Date: 20110831
  Serious: Yes (Hospitalization, Other)
  Sender: FDA-Public Use
  Company Number: JP-JNJFOC-20100906225

PATIENT
  Sex: Male
  Weight: 59 kg

DRUGS (11)
  1. MERCAZOLE [Concomitant]
     Indication: HYPERTHYROIDISM
     Route: 048
  2. MEDROL [Concomitant]
     Indication: RHEUMATOID ARTHRITIS
     Route: 048
  3. GOLIMUMAB [Suspect]
     Indication: RHEUMATOID ARTHRITIS
     Route: 058
  4. DICLOFENAC SODIUM [Concomitant]
     Indication: RHEUMATOID ARTHRITIS
     Route: 048
  5. ALTAT [Concomitant]
     Indication: GASTRITIS
     Route: 048
  6. FOLIAMIN [Concomitant]
     Indication: PROPHYLAXIS
     Route: 048
  7. VOLTAREN [Concomitant]
     Indication: RHEUMATOID ARTHRITIS
     Route: 061
  8. GOLIMUMAB [Suspect]
     Route: 058
  9. METOLATE [Concomitant]
     Indication: RHEUMATOID ARTHRITIS
     Route: 048
  10. URSO 250 [Concomitant]
     Route: 048
  11. MELOXICAM [Concomitant]
     Indication: RHEUMATOID ARTHRITIS
     Route: 048

REACTIONS (3)
  - HEADACHE [None]
  - NAUSEA [None]
  - PYELONEPHRITIS ACUTE [None]
